FAERS Safety Report 5305050-9 (Version None)
Quarter: 2007Q2

REPORT INFORMATION
  Report Type: 
  Country: None (occurrence: None)
  Receive Date: 20070417
  Receipt Date: 20070405
  Transmission Date: 20071010
  Serious: Yes (Hospitalization)
  Sender: FDA-Public Use
  Company Number: 2007BI007586

PATIENT
  Age: 67 Year
  Sex: Female

DRUGS (1)
  1. AVONEX [Suspect]
     Indication: MULTIPLE SCLEROSIS
     Dosage: 30 UG;QW;IM
     Route: 030
     Dates: start: 20010504

REACTIONS (5)
  - BLOOD DISORDER [None]
  - HAEMOGLOBIN DECREASED [None]
  - INFECTION [None]
  - THYROID DISORDER [None]
  - URINARY TRACT INFECTION [None]
